FAERS Safety Report 10100797 (Version 2)
Quarter: 2014Q2

REPORT INFORMATION
  Report Type: Spontaneous
  Country: US (occurrence: US)
  Receive Date: 20140423
  Receipt Date: 20140513
  Transmission Date: 20141212
  Serious: No
  Sender: FDA-Public Use
  Company Number: US-009507513-1404USA001478

PATIENT
  Age: 78 Year
  Sex: Female
  Weight: 83.9 kg

DRUGS (20)
  1. OXYTROL FOR WOMEN [Suspect]
     Indication: POLLAKIURIA
     Dosage: UNK, UNKNOWN
     Route: 062
     Dates: start: 201402, end: 201403
  2. OXYTROL FOR WOMEN [Suspect]
     Indication: INCONTINENCE
  3. CALCIUM (UNSPECIFIED) (+) VITAMIN D (UNSPECIFIED) [Concomitant]
     Indication: PRODUCT USED FOR UNKNOWN INDICATION
     Dosage: 600 MG, QD
  4. ASPIRIN [Concomitant]
     Indication: PRODUCT USED FOR UNKNOWN INDICATION
     Dosage: 81 MG, QD
     Route: 048
  5. CENTRUM SILVER [Concomitant]
     Indication: PRODUCT USED FOR UNKNOWN INDICATION
     Dosage: 1 DF, QD
     Route: 048
  6. FEXOFENADINE HYDROCHLORIDE [Concomitant]
     Indication: PRODUCT USED FOR UNKNOWN INDICATION
     Dosage: 180 MG, QD
     Route: 048
  7. SYMBICORT [Concomitant]
     Indication: PRODUCT USED FOR UNKNOWN INDICATION
     Dosage: 80 MICROGRAM, BID
  8. SENNA LAX (SENNOSIDES) [Concomitant]
     Indication: CONSTIPATION
     Dosage: 17.2 MG, QD
  9. MIRALAX [Concomitant]
     Indication: PRODUCT USED FOR UNKNOWN INDICATION
     Dosage: 17 G, UNKNOWN
  10. SINGULAIR [Concomitant]
     Indication: PRODUCT USED FOR UNKNOWN INDICATION
     Dosage: 10 MG, QD
     Route: 048
  11. LISINOPRIL [Concomitant]
     Indication: PRODUCT USED FOR UNKNOWN INDICATION
     Dosage: 20 MG, QD
     Route: 048
  12. MECLIZINE HYDROCHLORIDE [Concomitant]
     Indication: PRODUCT USED FOR UNKNOWN INDICATION
     Dosage: 25 MG, BID
     Route: 048
  13. HYDROCORTISONE [Concomitant]
     Indication: PSORIASIS
     Dosage: UNK, UNKNOWN
     Route: 061
  14. OMEGA-3 [Concomitant]
     Indication: PRODUCT USED FOR UNKNOWN INDICATION
     Dosage: 2000 MG, BID
  15. HYDROCHLOROTHIAZIDE (+) TRIAMTERENE [Concomitant]
     Indication: OEDEMA
     Dosage: 1 DF, QD
     Route: 048
  16. ERGOCALCIFEROL [Concomitant]
     Indication: PRODUCT USED FOR UNKNOWN INDICATION
     Dosage: 50000 IU, QW
     Route: 048
  17. XANAX [Concomitant]
     Indication: ANXIETY
     Dosage: 0.25 MG, BID
  18. SYNTHROID [Concomitant]
     Indication: PRODUCT USED FOR UNKNOWN INDICATION
     Dosage: 75 MICROGRAM, QD
     Route: 048
  19. TYLENOL WITH CODEINE [Concomitant]
     Indication: ARTHRALGIA
     Dosage: 1 DF, Q8H
     Route: 048
  20. PREDNISONE [Concomitant]
     Indication: ARTHRITIS
     Dosage: 10 MG, BID
     Route: 048

REACTIONS (1)
  - Drug ineffective [Unknown]
